FAERS Safety Report 12973507 (Version 5)
Quarter: 2017Q2

REPORT INFORMATION
  Report Type: Report from Study
  Country: JP (occurrence: JP)
  Receive Date: 20161124
  Receipt Date: 20170404
  Transmission Date: 20170830
  Serious: Yes (Hospitalization, Other)
  Sender: FDA-Public Use
  Company Number: JP-BRISTOL-MYERS SQUIBB COMPANY-BMS-2016-099059

PATIENT
  Age: 76 Year
  Sex: Female
  Weight: 35.7 kg

DRUGS (1)
  1. IPILIMUMAB [Suspect]
     Active Substance: IPILIMUMAB
     Indication: METASTATIC MALIGNANT MELANOMA
     Dosage: 3 MG/KG, Q3WK
     Route: 041
     Dates: start: 20160414, end: 20160623

REACTIONS (4)
  - Platelet count decreased [Recovered/Resolved]
  - Hepatic function abnormal [Recovered/Resolved]
  - Nausea [Not Recovered/Not Resolved]
  - Malaise [Recovered/Resolved]

NARRATIVE: CASE EVENT DATE: 20160923
